FAERS Safety Report 4428491-0 (Version None)
Quarter: 2004Q3

REPORT INFORMATION
  Report Type: 
  Country: None (occurrence: None)
  Receive Date: 20040816
  Receipt Date: 20040804
  Transmission Date: 20050211
  Serious: Yes (Hospitalization)
  Sender: FDA-Public Use
  Company Number: 04H-163-0269680-00

PATIENT
  Sex: Female

DRUGS (1)
  1. BUPIVACAINE HCL [Suspect]
     Indication: ANAESTHESIA
     Dosage: 5 CC, FOUR TIMES, SUBCUTANEOUS
     Route: 058
     Dates: start: 20040701, end: 20040701

REACTIONS (2)
  - ARTHROPATHY [None]
  - SWELLING [None]
